FAERS Safety Report 4863504-3 (Version None)
Quarter: 2005Q4

REPORT INFORMATION
  Report Type: 
  Country: None (occurrence: None)
  Receive Date: 20051222
  Receipt Date: 20050321
  Transmission Date: 20060501
  Serious: No
  Sender: FDA-Public Use
  Company Number: US-GLAXOSMITHKLINE-A0550644A

PATIENT
  Age: 44 Year
  Sex: Female

DRUGS (11)
  1. FLONASE [Suspect]
     Dosage: 2SPR PER DAY
     Route: 045
     Dates: start: 20050318
  2. AMITRIPTYLINE [Concomitant]
  3. BACLOFEN [Concomitant]
  4. NABUMETONE [Concomitant]
  5. OXYCONTIN [Concomitant]
  6. CATAPRES-TTS-1 [Concomitant]
  7. NEURONTIN [Concomitant]
  8. CARMOL HC [Concomitant]
  9. LOVASTATIN [Concomitant]
  10. DETROL LA [Concomitant]
  11. CLARITIN-D [Concomitant]

REACTIONS (1)
  - HEADACHE [None]
